FAERS Safety Report 12130451 (Version 3)
Quarter: 2016Q1

REPORT INFORMATION
  Report Type: Report from Study
  Country: US (occurrence: US)
  Receive Date: 20160301
  Receipt Date: 20160331
  Transmission Date: 20160526
  Serious: Yes (Other)
  Sender: FDA-Public Use
  Company Number: PHEH2016US004798

PATIENT
  Sex: Male

DRUGS (1)
  1. TOBI PODHALER [Suspect]
     Active Substance: TOBRAMYCIN
     Indication: PRODUCT USED FOR UNKNOWN INDICATION
     Dosage: 112 MG, BID
     Route: 055
     Dates: start: 201509

REACTIONS (7)
  - Lung infection [Unknown]
  - Infection susceptibility increased [Unknown]
  - Secretion discharge [Unknown]
  - Total lung capacity decreased [Unknown]
  - Feeling abnormal [Unknown]
  - Blindness [Unknown]
  - Tracheal disorder [Not Recovered/Not Resolved]
